FAERS Safety Report 4401644-3 (Version None)
Quarter: 2004Q3

REPORT INFORMATION
  Report Type: 
  Country: None (occurrence: None)
  Receive Date: 20040719
  Receipt Date: 20040706
  Transmission Date: 20050211
  Serious: Yes (Life-Threatening)
  Sender: FDA-Public Use
  Company Number: DE-ROCHE-373553

PATIENT
  Age: 60 Year

DRUGS (5)
  1. INTERFERON ALFA-2A [Suspect]
     Route: 065
  2. PROLEUKIN [Suspect]
     Route: 065
  3. DICODID [Suspect]
     Indication: DRUG USE FOR UNKNOWN INDICATION
     Route: 065
  4. ALLERGOSPASMIN [Suspect]
     Indication: DRUG USE FOR UNKNOWN INDICATION
     Dosage: DOSE REPORTED AS 2 TIMES 2 PER DAY.
     Route: 065
  5. VENTOLINE DISKUS [Concomitant]
     Indication: DRUG USE FOR UNKNOWN INDICATION
     Dosage: DOSE REPORTED AS 2 TIMES 2 PER DAY DRUG REPORTED AS VIANI DISKUS
     Route: 065

REACTIONS (4)
  - ASTHMA [None]
  - DEHYDRATION [None]
  - STATUS ASTHMATICUS [None]
  - VOMITING [None]
